FAERS Safety Report 4942919-9 (Version None)
Quarter: 2006Q1

REPORT INFORMATION
  Report Type: 
  Country: None (occurrence: None)
  Receive Date: 20060309
  Receipt Date: 20060224
  Transmission Date: 20060701
  Serious: Yes (Hospitalization)
  Sender: FDA-Public Use
  Company Number: 2006-CZ-00772

PATIENT
  Age: 71 Year
  Sex: Female

DRUGS (10)
  1. TRAMADOL HCL [Suspect]
  2. INFLIXIMAB [Suspect]
     Dosage: 9 INFUSIONS, INTRAVENOUS
     Route: 042
  3. METHOTREXATE [Concomitant]
  4. DICLOFENAC [Concomitant]
  5. FOLIC ACID [Concomitant]
  6. LANSOPRAZOLE [Concomitant]
  7. ALENDRONATE SODIUM [Concomitant]
  8. TEMAZEPAM [Concomitant]
  9. VEGANIN [Concomitant]
  10. CALCIUM CARBONATE [Concomitant]

REACTIONS (1)
  - PERITONEAL TUBERCULOSIS [None]
